FAERS Safety Report 5789830-1 (Version None)
Quarter: 2008Q2

REPORT INFORMATION
  Report Type: 
  Country: None (occurrence: None)
  Receive Date: 20080626
  Receipt Date: 20080213
  Transmission Date: 20081010
  Serious: No
  Sender: FDA-Public Use
  Company Number: A0709352A

PATIENT
  Age: 54 Year
  Sex: Male

DRUGS (2)
  1. ALLI [Suspect]
     Dates: start: 20080211
  2. OMEGA 3 [Concomitant]

REACTIONS (3)
  - CONSTIPATION [None]
  - MUSCLE SPASMS [None]
  - POLLAKIURIA [None]
